FAERS Safety Report 9781170 (Version 1)
Quarter: 2013Q4

REPORT INFORMATION
  Report Type: Spontaneous
  Country: US (occurrence: None)
  Receive Date: 20131223
  Receipt Date: 20131223
  Transmission Date: 20140711
  Serious: Yes (Other)
  Sender: FDA-Public Use
  Company Number: None

PATIENT
  Age: 52 Year
  Sex: Female
  Weight: 55.79 kg

DRUGS (1)
  1. NITROFURANTOIN [Suspect]
     Indication: CYSTITIS
     Dosage: 1 PILL
     Dates: start: 20131209, end: 20131216

REACTIONS (7)
  - Myalgia [None]
  - Fatigue [None]
  - Chills [None]
  - Tremor [None]
  - Pyrexia [None]
  - Dizziness [None]
  - Rash [None]
